FAERS Safety Report 19903916 (Version 3)
Quarter: 2022Q3

REPORT INFORMATION
  Report Type: Spontaneous
  Country: JP (occurrence: JP)
  Receive Date: 20211001
  Receipt Date: 20220714
  Transmission Date: 20221026
  Serious: No
  Sender: FDA-Public Use
  Company Number: JP-GSKNCCC-CASE-01315901_AE-49987

PATIENT

DRUGS (2)
  1. ATOVAQUONE [Suspect]
     Active Substance: ATOVAQUONE
     Dosage: 1 DF, BID
  2. ATOVAQUONE [Suspect]
     Active Substance: ATOVAQUONE
     Dosage: 1 DF, QD

REACTIONS (1)
  - Intercepted product prescribing error [Unknown]
